FAERS Safety Report 15337833 (Version 2)
Quarter: 2019Q4

REPORT INFORMATION
  Report Type: Spontaneous
  Country: FR (occurrence: FR)
  Receive Date: 20180831
  Receipt Date: 20191101
  Transmission Date: 20200122
  Serious: Yes (Death, Hospitalization, Other)
  Sender: FDA-Public Use
  Company Number: FR-ZYDUS-026208

PATIENT
  Age: 79 Year
  Sex: Male

DRUGS (3)
  1. RIVAROXABAN [Interacting]
     Active Substance: RIVAROXABAN
     Indication: PROPHYLAXIS
     Route: 065
  2. AMIODARONE [Suspect]
     Active Substance: AMIODARONE
     Indication: PRODUCT USED FOR UNKNOWN INDICATION
     Route: 065
  3. PRAVASTATIN. [Interacting]
     Active Substance: PRAVASTATIN
     Indication: PRODUCT USED FOR UNKNOWN INDICATION
     Route: 065

REACTIONS (4)
  - Brain oedema [Fatal]
  - Cerebral haematoma [Unknown]
  - Potentiating drug interaction [Unknown]
  - Renal failure [Unknown]
